FAERS Safety Report 16045438 (Version 1)
Quarter: 2019Q1

REPORT INFORMATION
  Report Type: Report from Study
  Country: FR (occurrence: FR)
  Receive Date: 20190307
  Receipt Date: 20190307
  Transmission Date: 20190418
  Serious: Yes (Other)
  Sender: FDA-Public Use
  Company Number: FR-VELOXIS PHARMACEUTICALS, INC.-2019VELFR1423

PATIENT
  Age: 59 Year
  Sex: Male
  Weight: 82 kg

DRUGS (17)
  1. ENVARSUS XR [Suspect]
     Active Substance: TACROLIMUS
     Indication: PROPHYLAXIS AGAINST TRANSPLANT REJECTION
     Dosage: 6 MG, QD
     Route: 048
     Dates: start: 20181207, end: 20190116
  2. ADVAGRAF [Concomitant]
     Active Substance: TACROLIMUS
     Indication: RENAL TRANSPLANT
     Dosage: 11 MG, QD
     Dates: start: 20170907, end: 20171007
  3. ADVAGRAF [Concomitant]
     Active Substance: TACROLIMUS
     Dosage: 8 MG, QD
     Dates: start: 20171008, end: 20171218
  4. LERCAN [Concomitant]
     Active Substance: LERCANIDIPINE
     Indication: HYPERTENSION
     Dosage: 20 MG, QD
     Route: 065
     Dates: start: 20181114
  5. ADVAGRAF [Concomitant]
     Active Substance: TACROLIMUS
     Dosage: 6 MG, QD
     Dates: start: 20180113, end: 20180207
  6. EUPRESSYL                          /00631801/ [Concomitant]
     Active Substance: URAPIDIL
     Indication: HYPERTENSION
     Dosage: 60 MG, QD
     Dates: start: 20190117
  7. ENVARSUS XR [Suspect]
     Active Substance: TACROLIMUS
     Dosage: 5 MG, QD
     Route: 048
     Dates: start: 20190125
  8. ADVAGRAF [Concomitant]
     Active Substance: TACROLIMUS
     Dosage: 5 MG, QD
     Dates: start: 20180731, end: 20181206
  9. IMOVANE [Concomitant]
     Active Substance: ZOPICLONE
     Indication: SLEEP DISORDER
     Dosage: 7.5 MG, QD
     Route: 065
     Dates: start: 20170915
  10. ENVARSUS XR [Suspect]
     Active Substance: TACROLIMUS
     Dosage: 4 MG, QD
     Route: 048
     Dates: start: 20190117, end: 20190124
  11. ADVAGRAF [Concomitant]
     Active Substance: TACROLIMUS
     Dosage: 8 MG, QD
     Dates: start: 20180106, end: 20180112
  12. KARDEGIC [Concomitant]
     Active Substance: ASPIRIN DL-LYSINE
     Indication: CARDIOVASCULAR EVENT PROPHYLAXIS
     Dosage: 75 MG, QD
     Route: 065
     Dates: start: 20170915
  13. MIMPARA [Concomitant]
     Active Substance: CINACALCET HYDROCHLORIDE
     Indication: HYPERPARATHYROIDISM
     Dosage: 60 MG, QD
     Route: 065
     Dates: start: 20171219
  14. INEXIUM                            /01479302/ [Concomitant]
     Active Substance: ESOMEPRAZOLE MAGNESIUM
     Indication: PROPHYLAXIS
     Dosage: 20 MG, QD
     Route: 065
     Dates: start: 20180106
  15. UVEDOSE [Concomitant]
     Active Substance: CHOLECALCIFEROL
     Indication: VITAMIN D DEFICIENCY
     Dosage: 100000 IU, EVERY 3 MONTHS
     Route: 065
     Dates: start: 20180208
  16. ADVAGRAF [Concomitant]
     Active Substance: TACROLIMUS
     Dosage: 9 MG, QD
     Dates: start: 20171219, end: 20180105
  17. ADVAGRAF [Concomitant]
     Active Substance: TACROLIMUS
     Dosage: 5.5 MG, QD
     Dates: start: 20180208, end: 20180730

REACTIONS (4)
  - Renal impairment [Recovered/Resolved]
  - Dysarthria [Recovered/Resolved]
  - Tremor [Not Recovered/Not Resolved]
  - Confusional state [Recovered/Resolved]

NARRATIVE: CASE EVENT DATE: 20190107
